FAERS Safety Report 24326605 (Version 1)
Quarter: 2024Q3

REPORT INFORMATION
  Report Type: Spontaneous
  Country: US (occurrence: US)
  Receive Date: 20240917
  Receipt Date: 20240917
  Transmission Date: 20241017
  Serious: Yes (Hospitalization, Other)
  Sender: VIFOR
  Company Number: US-Vifor (International) Inc.-VIT-2024-08316

PATIENT
  Age: 28 Year
  Sex: Female
  Weight: 51.5 kg

DRUGS (1)
  1. MIRCERA [Suspect]
     Active Substance: METHOXY POLYETHYLENE GLYCOL-EPOETIN BETA
     Indication: Nephrogenic anaemia
     Dosage: FIRST DOSE
     Route: 040
     Dates: start: 20240807, end: 20240807

REACTIONS (7)
  - Drug hypersensitivity [Recovering/Resolving]
  - Flushing [Recovering/Resolving]
  - Urticaria [Recovering/Resolving]
  - Lip swelling [Recovering/Resolving]
  - Dizziness [Recovering/Resolving]
  - Throat tightness [Recovering/Resolving]
  - Heart rate increased [Recovering/Resolving]

NARRATIVE: CASE EVENT DATE: 20240807
